FAERS Safety Report 24991283 (Version 1)
Quarter: 2025Q1

REPORT INFORMATION
  Report Type: Spontaneous
  Country: DE (occurrence: DE)
  Receive Date: 20250220
  Receipt Date: 20250220
  Transmission Date: 20250409
  Serious: Yes (Other)
  Sender: NOVARTIS
  Company Number: DE-002147023-NVSC2025DE027472

PATIENT
  Sex: Male

DRUGS (4)
  1. COSENTYX [Suspect]
     Active Substance: SECUKINUMAB
     Indication: Psoriasis
     Dosage: 150 MG, QMO
     Route: 065
  2. COSENTYX [Suspect]
     Active Substance: SECUKINUMAB
     Dosage: 150 MG, QMO
     Route: 065
  3. COSENTYX [Suspect]
     Active Substance: SECUKINUMAB
     Route: 065
  4. ASPIRIN [Concomitant]
     Active Substance: ASPIRIN
     Indication: Product used for unknown indication
     Route: 065

REACTIONS (11)
  - Prostate cancer [Unknown]
  - Thrombosis [Unknown]
  - Coronavirus infection [Unknown]
  - Disease recurrence [Unknown]
  - Hypertension [Recovering/Resolving]
  - Stress [Unknown]
  - Feeling hot [Unknown]
  - Headache [Unknown]
  - Bone pain [Unknown]
  - Incorrect dose administered [Unknown]
  - Incorrect dosage administered [Unknown]
